FAERS Safety Report 4465998-4 (Version None)
Quarter: 2004Q3

REPORT INFORMATION
  Report Type: 
  Country: None (occurrence: None)
  Receive Date: 20040930
  Receipt Date: 20040927
  Transmission Date: 20050211
  Serious: Yes (Hospitalization)
  Sender: FDA-Public Use
  Company Number: 2004CG01756

PATIENT
  Age: 73 Year
  Sex: Male

DRUGS (3)
  1. MOPRAL [Suspect]
     Indication: ULCER
  2. PLAVIX [Suspect]
     Dates: end: 20040809
  3. PLAVIX [Suspect]
     Dates: start: 20040911

REACTIONS (2)
  - APLASIA PURE RED CELL [None]
  - NORMOCHROMIC NORMOCYTIC ANAEMIA [None]
